FAERS Safety Report 7865412-2 (Version None)
Quarter: 2011Q4

REPORT INFORMATION
  Report Type: 
  Country: None (occurrence: None)
  Receive Date: 20111028
  Receipt Date: 20101217
  Transmission Date: 20120403
  Serious: Yes (Other)
  Sender: FDA-Public Use
  Company Number: US-GLAXOSMITHKLINE-A0900365A

PATIENT
  Age: 57 Year
  Sex: Female

DRUGS (10)
  1. AMOXICILLIN [Concomitant]
  2. KLONOPIN [Concomitant]
  3. ADVAIR DISKUS 100/50 [Suspect]
     Indication: BRONCHITIS
     Route: 055
     Dates: start: 20101206
  4. CALCIUM CARBONATE [Concomitant]
  5. MAGNESIUM [Concomitant]
  6. BENTYL [Concomitant]
  7. AMINO ACID INJ [Concomitant]
  8. PROAIR HFA [Concomitant]
  9. PROZAC [Concomitant]
  10. VITAMIN D SUPPLEMENT [Concomitant]

REACTIONS (2)
  - PRODUCT QUALITY ISSUE [None]
  - CHOKING [None]
